FAERS Safety Report 19257113 (Version 1)
Quarter: 2021Q2

REPORT INFORMATION
  Report Type: Report from Study
  Country: None (occurrence: US)
  Receive Date: 20210513
  Receipt Date: 20210513
  Transmission Date: 20210717
  Serious: Yes (Hospitalization)
  Sender: FDA-Public Use
  Company Number: US-ABBVIE-21P-163-3894399-00

PATIENT
  Age: 75 Year
  Sex: Female
  Weight: 86.6 kg

DRUGS (3)
  1. RITUXIMAB. [Concomitant]
     Active Substance: RITUXIMAB
     Indication: CHRONIC LYMPHOCYTIC LEUKAEMIA
     Dosage: DAYS 1, 8, 15 AND 22
     Route: 042
     Dates: start: 20170217
  2. RITUXIMAB. [Concomitant]
     Active Substance: RITUXIMAB
     Dosage: DAYS 1 ( FOR CYCLES 3?6)
     Route: 042
  3. IBRUTINIB [Suspect]
     Active Substance: IBRUTINIB
     Indication: PRODUCT USED FOR UNKNOWN INDICATION
     Route: 048
     Dates: start: 20170217, end: 20210323

REACTIONS (3)
  - Atrial fibrillation [Recovering/Resolving]
  - Sinus tachycardia [Recovering/Resolving]
  - Atrial flutter [Recovering/Resolving]

NARRATIVE: CASE EVENT DATE: 20170412
